FAERS Safety Report 20758449 (Version 5)
Quarter: 2022Q4

REPORT INFORMATION
  Report Type: Report from Study
  Country: US (occurrence: US)
  Receive Date: 20220427
  Receipt Date: 20221027
  Transmission Date: 20230112
  Serious: Yes (Other)
  Sender: FDA-Public Use
  Company Number: US-MALLINCKRODT-T202201578

PATIENT
  Sex: Female

DRUGS (2)
  1. CORTICOTROPIN [Suspect]
     Active Substance: CORTICOTROPIN
     Indication: Dermatomyositis
     Dosage: 80 UNITS, TWICE A WEEK (WEDNESDAYS AND SATURDAYS)
     Route: 058
     Dates: start: 20220330
  2. CORTICOTROPIN [Suspect]
     Active Substance: CORTICOTROPIN
     Indication: Polymyositis

REACTIONS (9)
  - Vaginal haemorrhage [Unknown]
  - Nonspecific reaction [Unknown]
  - Muscle spasms [Unknown]
  - Pain in extremity [Unknown]
  - Calcinosis [Unknown]
  - Muscular weakness [Recovering/Resolving]
  - Pharyngitis streptococcal [Recovering/Resolving]
  - Therapeutic product effect incomplete [Not Recovered/Not Resolved]
  - Product dose omission issue [Unknown]

NARRATIVE: CASE EVENT DATE: 20220101
